FAERS Safety Report 18886107 (Version 1)
Quarter: 2021Q1

REPORT INFORMATION
  Report Type: Spontaneous
  Country: US (occurrence: US)
  Receive Date: 20210212
  Receipt Date: 20210212
  Transmission Date: 20210420
  Serious: Yes (Other)
  Sender: FDA-Public Use
  Company Number: US-GLAXOSMITHKLINE-US2021GSK039355

PATIENT

DRUGS (16)
  1. RANITIDINE HYDROCHLORIDE. [Suspect]
     Active Substance: RANITIDINE HYDROCHLORIDE
     Dosage: 20 MG, QD
     Route: 065
     Dates: start: 200302, end: 201802
  2. ZANTAC [Suspect]
     Active Substance: RANITIDINE HYDROCHLORIDE
     Dosage: 40 MG, QD
     Route: 065
     Dates: start: 200302, end: 201802
  3. RANITIDINE CAPSULE [Suspect]
     Active Substance: RANITIDINE
     Dosage: 40 MG, QD
     Route: 065
     Dates: start: 200302, end: 201802
  4. RANITIDINE HYDROCHLORIDE. [Suspect]
     Active Substance: RANITIDINE HYDROCHLORIDE
     Dosage: 40 MG, QD
     Route: 065
     Dates: start: 200302, end: 201802
  5. RANITIDINE CAPSULE [Suspect]
     Active Substance: RANITIDINE
     Dosage: 20 MG, QD
     Route: 065
     Dates: start: 200302, end: 201802
  6. ZANTAC [Suspect]
     Active Substance: RANITIDINE HYDROCHLORIDE
     Dosage: 20 MG, QD
     Route: 065
     Dates: start: 200302, end: 201802
  7. RANITIDINE HYDROCHLORIDE. [Suspect]
     Active Substance: RANITIDINE HYDROCHLORIDE
     Dosage: 40 MG, QD
     Route: 065
     Dates: start: 200302, end: 201802
  8. ZANTAC [Suspect]
     Active Substance: RANITIDINE HYDROCHLORIDE
     Dosage: 20 MG, QD
     Route: 065
     Dates: start: 200302, end: 201802
  9. ZANTAC [Suspect]
     Active Substance: RANITIDINE HYDROCHLORIDE
     Dosage: 20 MG, QD
     Route: 065
     Dates: start: 200302, end: 201802
  10. RANITIDINE CAPSULE [Suspect]
     Active Substance: RANITIDINE
     Dosage: 20 MG, QD
     Route: 065
     Dates: start: 200302, end: 201802
  11. ZANTAC [Suspect]
     Active Substance: RANITIDINE HYDROCHLORIDE
     Dosage: 40 MG, QD
     Route: 065
     Dates: start: 200302, end: 201802
  12. RANITIDINE. [Suspect]
     Active Substance: RANITIDINE
     Dosage: 20 MG, QD
     Route: 065
     Dates: start: 200302, end: 201802
  13. ZANTAC [Suspect]
     Active Substance: RANITIDINE HYDROCHLORIDE
     Dosage: 40 MG, QD
     Route: 065
     Dates: start: 200302, end: 201802
  14. RANITIDINE HYDROCHLORIDE. [Suspect]
     Active Substance: RANITIDINE HYDROCHLORIDE
     Dosage: 20 MG, QD
     Route: 065
     Dates: start: 200302, end: 201802
  15. RANITIDINE. [Suspect]
     Active Substance: RANITIDINE
     Dosage: 40 MG, QD
     Route: 065
     Dates: start: 200302, end: 201802
  16. RANITIDINE CAPSULE [Suspect]
     Active Substance: RANITIDINE
     Dosage: 40 MG, QD
     Route: 065
     Dates: start: 200302, end: 201802

REACTIONS (1)
  - Basal cell carcinoma [Unknown]
